FAERS Safety Report 8094365-X (Version None)
Quarter: 2012Q1

REPORT INFORMATION
  Report Type: 
  Country: None (occurrence: None)
  Receive Date: 20120130
  Receipt Date: 20120124
  Transmission Date: 20120608
  Serious: No
  Sender: FDA-Public Use
  Company Number: US-PFIZER INC-2012020129

PATIENT
  Sex: Female
  Weight: 72.56 kg

DRUGS (1)
  1. IBUPROFEN (ADVIL) [Suspect]
     Indication: EYE PAIN
     Dosage: UNK
     Dates: start: 19880101

REACTIONS (1)
  - TINNITUS [None]
